FAERS Safety Report 6986254-6 (Version None)
Quarter: 2010Q3

REPORT INFORMATION
  Report Type: 
  Country: None (occurrence: None)
  Receive Date: 20100915
  Receipt Date: 20090612
  Transmission Date: 20110219
  Serious: No
  Sender: FDA-Public Use
  Company Number: US-WYE-H09748309

PATIENT
  Sex: Male
  Weight: 77.63 kg

DRUGS (6)
  1. PRISTIQ [Suspect]
     Indication: DEPRESSION
     Route: 048
     Dates: start: 20090609
  2. FUROSEMIDE [Concomitant]
  3. SIMVASTATIN [Concomitant]
  4. METOPROLOL TARTRATE [Concomitant]
  5. MIRALAX [Concomitant]
  6. COUMADIN [Concomitant]

REACTIONS (2)
  - DYSURIA [None]
  - URINARY HESITATION [None]
